FAERS Safety Report 5663047-3 (Version None)
Quarter: 2008Q1

REPORT INFORMATION
  Report Type: 
  Country: None (occurrence: None)
  Receive Date: 20080313
  Receipt Date: 20080303
  Transmission Date: 20080703
  Serious: Yes (Other)
  Sender: FDA-Public Use
  Company Number: US-PFIZER INC-2008020417

PATIENT
  Sex: Female
  Weight: 62.6 kg

DRUGS (6)
  1. LIPITOR [Suspect]
     Indication: BLOOD CHOLESTEROL INCREASED
  2. SYNTHROID [Suspect]
     Indication: THYROID DISORDER
  3. LANOXIN [Concomitant]
     Indication: HYPERTENSION
  4. NORVASC [Concomitant]
     Indication: HYPERTENSION
  5. WARFARIN SODIUM [Concomitant]
     Indication: ATRIAL FIBRILLATION
  6. ATENOLOL [Concomitant]
     Indication: ATRIAL FIBRILLATION

REACTIONS (3)
  - FLATULENCE [None]
  - PALPITATIONS [None]
  - THYROID DISORDER [None]
